FAERS Safety Report 9443934 (Version 2)
Quarter: 2013Q3

REPORT INFORMATION
  Report Type: Spontaneous
  Country: AU (occurrence: AU)
  Receive Date: 20130807
  Receipt Date: 20130905
  Transmission Date: 20140515
  Serious: Yes (Hospitalization)
  Sender: FDA-Public Use
  Company Number: AU-ABBOTT-13X-008-1129247-00

PATIENT
  Age: 53 Year
  Sex: Male

DRUGS (4)
  1. VALPROIC ACID [Suspect]
     Indication: BIPOLAR DISORDER
     Route: 048
  2. MEDROXYPROGESTERONE [Suspect]
     Indication: AGGRESSION
     Dosage: 150 MILLIGRAM(S); UNKNOWN
     Route: 030
  3. CLOZARIL [Suspect]
     Indication: SCHIZOPHRENIA
     Route: 048
     Dates: start: 19931124
  4. METFORMIN [Concomitant]
     Indication: PRODUCT USED FOR UNKNOWN INDICATION

REACTIONS (3)
  - Antipsychotic drug level decreased [Unknown]
  - Aggression [Recovering/Resolving]
  - Agitation [Recovering/Resolving]
